FAERS Safety Report 9689076 (Version 1)
Quarter: 2013Q4

REPORT INFORMATION
  Report Type: Spontaneous
  Country: US (occurrence: US)
  Receive Date: 20131114
  Receipt Date: 20131114
  Transmission Date: 20140711
  Serious: Yes (Other)
  Sender: FDA-Public Use
  Company Number: US-WATSON-2013-20399

PATIENT
  Age: 83 Year
  Sex: Male

DRUGS (1)
  1. RAPAFLO (WATSON LABORATORIES) [Suspect]
     Indication: BLADDER DISORDER
     Dosage: 8 MG, UNKNOWN
     Route: 048
     Dates: start: 201310

REACTIONS (1)
  - Epistaxis [Not Recovered/Not Resolved]
